FAERS Safety Report 25187615 (Version 1)
Quarter: 2025Q2

REPORT INFORMATION
  Report Type: Other
  Country: US (occurrence: US)
  Receive Date: 20250411
  Receipt Date: 20250411
  Transmission Date: 20250717
  Serious: Yes (Death, Other)
  Sender: ALVOGEN
  Company Number: US-ALVOGEN-2025096960

PATIENT
  Age: 29 Year
  Sex: Male

DRUGS (4)
  1. DEXTROAMPHETAMINE SACCHARATE, AMPHETAMINE ASPARTATE, DEXTROAMPHETAMINE [Suspect]
     Active Substance: AMPHETAMINE ASPARTATE\AMPHETAMINE SULFATE\DEXTROAMPHETAMINE SACCHARATE\DEXTROAMPHETAMINE SULFATE
     Indication: Drug abuse
     Route: 065
  2. FENTANYL [Suspect]
     Active Substance: FENTANYL
     Indication: Drug abuse
     Route: 065
  3. CANNABIS SATIVA FLOWERING TOP [Suspect]
     Active Substance: CANNABIS SATIVA FLOWERING TOP
     Indication: Drug abuse
     Route: 065
  4. METHAMPHETAMINE [Suspect]
     Active Substance: METHAMPHETAMINE
     Indication: Drug abuse
     Route: 065

REACTIONS (4)
  - Drug abuse [Fatal]
  - Cardiac arrest [Unknown]
  - Respiratory arrest [Unknown]
  - Prescription drug used without a prescription [Unknown]
